FAERS Safety Report 4425208-0 (Version None)
Quarter: 2004Q3

REPORT INFORMATION
  Report Type: 
  Country: None (occurrence: None)
  Receive Date: 20040813
  Receipt Date: 20040809
  Transmission Date: 20050211
  Serious: Yes (Life-Threatening, Hospitalization)
  Sender: FDA-Public Use
  Company Number: DE-BRISTOL-MYERS SQUIBB COMPANY-12667614

PATIENT
  Age: 85 Year
  Sex: Female

DRUGS (2)
  1. GLUCOPHAGE [Suspect]
     Indication: DIABETES MELLITUS
     Route: 048
     Dates: start: 20040327, end: 20040330
  2. AMARYL [Concomitant]
     Indication: DIABETES MELLITUS
     Route: 048
     Dates: start: 20040323, end: 20040329

REACTIONS (4)
  - ACIDOSIS [None]
  - GASTROINTESTINAL HAEMORRHAGE [None]
  - HEPATIC ENZYME INCREASED [None]
  - SHOCK [None]
